FAERS Safety Report 5233668-0 (Version None)
Quarter: 2007Q1

REPORT INFORMATION
  Report Type: 
  Country: None (occurrence: None)
  Receive Date: 20070208
  Receipt Date: 20070131
  Transmission Date: 20070707
  Serious: Yes (Other)
  Sender: FDA-Public Use
  Company Number: 2007UW02135

PATIENT
  Age: 58 Year
  Sex: Female
  Weight: 53.5 kg

DRUGS (5)
  1. ARIMIDEX [Suspect]
     Indication: BREAST CANCER FEMALE
     Route: 048
     Dates: start: 20040101
  2. ARIMIDEX [Suspect]
     Route: 048
  3. TOPAMAX [Concomitant]
  4. VITAMIN CAP [Concomitant]
  5. CALCIUM [Concomitant]

REACTIONS (3)
  - HEADACHE [None]
  - NEURALGIA [None]
  - PARAESTHESIA [None]
